FAERS Safety Report 22747269 (Version 3)
Quarter: 2023Q4

REPORT INFORMATION
  Report Type: Spontaneous
  Country: IT (occurrence: IT)
  Receive Date: 20230725
  Receipt Date: 20231114
  Transmission Date: 20240110
  Serious: Yes (Hospitalization)
  Sender: FDA-Public Use
  Company Number: None

PATIENT
  Age: 61 Year
  Sex: Male
  Weight: 80 kg

DRUGS (5)
  1. KESIMPTA [Suspect]
     Active Substance: OFATUMUMAB
     Indication: Multiple sclerosis
     Dosage: 20 MG, QMO (VIAL) (OFATUMUMAB 20 MG 1 FIALA S.C./MESE)
     Route: 058
     Dates: start: 20220704
  2. NABIXIMOLS [Concomitant]
     Active Substance: NABIXIMOLS
     Indication: Muscle spasticity
     Dosage: 6 DOSAGE FORM, QD (SPRAY)
     Route: 048
     Dates: start: 201901
  3. NABIXIMOLS [Concomitant]
     Active Substance: NABIXIMOLS
     Dosage: 6 DOSAGE FORM (6 PUFF/DIE)
     Route: 048
  4. BACLOFEN [Concomitant]
     Active Substance: BACLOFEN
     Indication: Muscle spasticity
     Dosage: 25 MG, BID (1 TABLET X 2/DAY)
     Route: 048
     Dates: start: 201801
  5. BACLOFEN [Concomitant]
     Active Substance: BACLOFEN
     Dosage: 25 MG (1 CP X2/DIE)
     Route: 048

REACTIONS (2)
  - Cellulitis [Recovering/Resolving]
  - Polymerase chain reaction positive [Unknown]

NARRATIVE: CASE EVENT DATE: 20230706
